FAERS Safety Report 9032057 (Version 1)
Quarter: 2013Q1

REPORT INFORMATION
  Report Type: Spontaneous
  Country: US (occurrence: US)
  Receive Date: 20130125
  Receipt Date: 20130125
  Transmission Date: 20140127
  Serious: No
  Sender: FDA-Public Use
  Company Number: US-PFIZER INC-2013028187

PATIENT
  Sex: Male

DRUGS (3)
  1. BOSULIF [Suspect]
     Indication: CHRONIC MYELOID LEUKAEMIA
     Dosage: 500 MG, 1X/DAY
     Route: 048
     Dates: start: 201301
  2. BOSULIF [Suspect]
     Indication: CHROMOSOME ANALYSIS ABNORMAL
  3. ZOFRAN [Suspect]
     Indication: VOMITING
     Dosage: UNK
     Dates: start: 201301

REACTIONS (2)
  - Drug ineffective [Unknown]
  - Vomiting [Not Recovered/Not Resolved]
